FAERS Safety Report 7428906-X (Version None)
Quarter: 2011Q2

REPORT INFORMATION
  Report Type: 
  Country: None (occurrence: None)
  Receive Date: 20110415
  Receipt Date: 20110415
  Transmission Date: 20111010
  Serious: Yes (Other)
  Sender: FDA-Public Use
  Company Number: None

PATIENT
  Age: 55 Year
  Sex: Female
  Weight: 75.2971 kg

DRUGS (1)
  1. VICTOZA [Suspect]
     Indication: DIABETES MELLITUS
     Dosage: 1.8 MG ONCE DAILY SQ
     Route: 058
     Dates: start: 20110305, end: 20110408

REACTIONS (2)
  - INJECTION SITE URTICARIA [None]
  - CONTUSION [None]
